FAERS Safety Report 5568159-0 (Version None)
Quarter: 2007Q4

REPORT INFORMATION
  Report Type: 
  Country: None (occurrence: None)
  Receive Date: 20071220
  Receipt Date: 20071214
  Transmission Date: 20080405
  Serious: Yes (Death, Other)
  Sender: FDA-Public Use
  Company Number: US-NOVOPROD-270283

PATIENT
  Age: 49 Year
  Sex: Female

DRUGS (1)
  1. NOVOSEVEN [Suspect]
     Indication: HAEMORRHAGE
     Dosage: 90 UG/KG, 8 DOSES
     Route: 042

REACTIONS (2)
  - MYOCARDIAL ISCHAEMIA [None]
  - THERAPEUTIC RESPONSE DECREASED [None]
